FAERS Safety Report 10511720 (Version 2)
Quarter: 2014Q4

REPORT INFORMATION
  Report Type: Spontaneous
  Country: US (occurrence: None)
  Receive Date: 20140926
  Receipt Date: 20141223
  Transmission Date: 20150528
  Serious: No
  Sender: FDA-Public Use
  Company Number: 1000068345

PATIENT
  Age: 81 Year
  Sex: Male

DRUGS (5)
  1. OMEPRAZOLE (OMEPRAZOLE) ( OMEPRAZOLE) [Concomitant]
  2. ALLOPURINOL (ALLOPURINOL) (ALLOPURINOL) [Concomitant]
     Active Substance: ALLOPURINOL
  3. BENTYL ( DICYCLOVERINE HYDROCHLORIDE) (DICYCLOVERINE HYDROCHLORIDE) [Concomitant]
  4. LINZESS [Suspect]
     Active Substance: LINACLOTIDE
     Indication: IRRITABLE BOWEL SYNDROME
     Route: 048
     Dates: start: 2014
  5. LINZESS [Suspect]
     Active Substance: LINACLOTIDE
     Indication: CONSTIPATION
     Route: 048
     Dates: start: 2014

REACTIONS (4)
  - Abdominal distension [None]
  - Abdominal rigidity [None]
  - Off label use [None]
  - Abdominal pain [None]

NARRATIVE: CASE EVENT DATE: 2014
